FAERS Safety Report 8374976-4 (Version None)
Quarter: 2012Q2

REPORT INFORMATION
  Report Type: 
  Country: None (occurrence: None)
  Receive Date: 20120521
  Receipt Date: 20120517
  Transmission Date: 20120825
  Serious: Yes (Hospitalization)
  Sender: FDA-Public Use
  Company Number: US-ROCHE-1069970

PATIENT
  Sex: Male
  Weight: 76.272 kg

DRUGS (3)
  1. POTASSIUM CHLORIDE [Concomitant]
     Route: 042
     Dates: start: 20120516
  2. XELODA [Suspect]
     Indication: COLORECTAL CANCER METASTATIC
     Route: 048
     Dates: start: 20120426, end: 20120508
  3. AVASTIN [Suspect]
     Indication: COLORECTAL CANCER METASTATIC
     Route: 042
     Dates: start: 20120426, end: 20120426

REACTIONS (6)
  - NAUSEA [None]
  - DECREASED APPETITE [None]
  - PNEUMONIA [None]
  - DIARRHOEA [None]
  - PYREXIA [None]
  - LIP SWELLING [None]
